FAERS Safety Report 4453788-8 (Version None)
Quarter: 2004Q3

REPORT INFORMATION
  Report Type: 
  Country: None (occurrence: None)
  Receive Date: 20040920
  Receipt Date: 20040122
  Transmission Date: 20050211
  Serious: Yes (Hospitalization)
  Sender: FDA-Public Use
  Company Number: US-BRISTOL-MYERS SQUIBB COMPANY-12483632

PATIENT
  Age: 66 Year
  Sex: Male
  Weight: 64 kg

DRUGS (20)
  1. CISPLATIN [Suspect]
     Indication: MESOTHELIOMA
     Route: 042
     Dates: start: 20031002, end: 20031211
  2. PEMETREXED DISODIUM [Suspect]
     Indication: MESOTHELIOMA
     Route: 042
     Dates: start: 20031002, end: 20031211
  3. GERITOL [Concomitant]
     Indication: VITAMIN SUPPLEMENTATION
     Dates: start: 20030901
  4. ZYRTEC [Concomitant]
     Indication: MULTIPLE ALLERGIES
     Dates: start: 20031001
  5. DECADRON [Concomitant]
     Indication: PREMEDICATION
     Dates: start: 20031001
  6. ZOFRAN [Concomitant]
     Indication: NAUSEA
  7. FOLIC ACID [Concomitant]
     Indication: VITAMIN SUPPLEMENTATION
     Dates: start: 20030917
  8. ANTIVERT [Concomitant]
     Indication: DIZZINESS
     Dates: start: 20030901
  9. ADVAIR DISKUS 100/50 [Concomitant]
     Indication: EMPHYSEMA
  10. ATROVENT [Concomitant]
     Indication: EMPHYSEMA
  11. ALBUTEROL [Concomitant]
     Indication: EMPHYSEMA
  12. OXYCONTIN [Concomitant]
     Indication: PAIN
     Route: 048
     Dates: start: 20030901
  13. LORTAB [Concomitant]
     Indication: PAIN
  14. COMPAZINE [Concomitant]
     Indication: NAUSEA
     Dates: start: 20031002
  15. PHENERGAN HCL [Concomitant]
     Indication: NAUSEA
     Dates: start: 20031002
  16. MEGACE [Concomitant]
     Indication: DECREASED APPETITE
     Dates: start: 20031124
  17. PREDNISONE [Concomitant]
     Indication: EMPHYSEMA
     Dates: start: 20031124
  18. PERCOCET [Concomitant]
     Indication: PAIN
  19. RESTORIL [Concomitant]
     Indication: INSOMNIA
     Route: 048
  20. VITAMIN B-12 [Concomitant]
     Route: 030
     Dates: start: 20030916, end: 20031113

REACTIONS (3)
  - DEHYDRATION [None]
  - FAILURE TO THRIVE [None]
  - MALIGNANT NEOPLASM PROGRESSION [None]
